FAERS Safety Report 20673484 (Version 1)
Quarter: 2022Q2

REPORT INFORMATION
  Report Type: Spontaneous
  Country: US (occurrence: US)
  Receive Date: 20220405
  Receipt Date: 20220405
  Transmission Date: 20220720
  Serious: No
  Sender: FDA-Public Use
  Company Number: US-BAYER-2022A047915

PATIENT
  Age: 80 Year
  Sex: Female

DRUGS (1)
  1. MIRALAX [Suspect]
     Active Substance: POLYETHYLENE GLYCOL 3350
     Indication: Constipation
     Dosage: ;UP TO THE 1ST LINE - SCREW LINE DOSE
     Route: 048
     Dates: start: 2020

REACTIONS (3)
  - Incorrect dose administered [Unknown]
  - Incorrect product administration duration [Not Recovered/Not Resolved]
  - Expired product administered [Unknown]

NARRATIVE: CASE EVENT DATE: 20200101
